FAERS Safety Report 12907828 (Version 3)
Quarter: 2017Q1

REPORT INFORMATION
  Report Type: Spontaneous
  Country: US (occurrence: US)
  Receive Date: 20161103
  Receipt Date: 20170103
  Transmission Date: 20170428
  Serious: No
  Sender: FDA-Public Use
  Company Number: US-PFIZER INC-2016505753

PATIENT
  Age: 87 Year
  Sex: Female

DRUGS (2)
  1. LETROZOLE. [Suspect]
     Active Substance: LETROZOLE
     Dosage: 2.5 MG, UNK
     Dates: start: 20161015
  2. IBRANCE [Suspect]
     Active Substance: PALBOCICLIB
     Dosage: 75 MG, UNK
     Dates: start: 20161015

REACTIONS (7)
  - Epistaxis [Unknown]
  - Diarrhoea [Unknown]
  - Peripheral coldness [Unknown]
  - Anaemia [Unknown]
  - Asthenia [Unknown]
  - Chest pain [Unknown]
  - Inappropriate schedule of drug administration [Unknown]
